FAERS Safety Report 9450257 (Version 4)
Quarter: 2013Q3

REPORT INFORMATION
  Report Type: Report from Study
  Country: ES (occurrence: ES)
  Receive Date: 20130809
  Receipt Date: 20130930
  Transmission Date: 20140515
  Serious: Yes (Death, Other)
  Sender: FDA-Public Use
  Company Number: ES-VERTEX PHARMACEUTICALS INC-2013-008669

PATIENT
  Age: 61 Year
  Sex: Male

DRUGS (3)
  1. TELAPREVIR [Suspect]
     Indication: CHRONIC HEPATITIS C
     Dosage: TABLET
     Route: 048
     Dates: start: 20130128
  2. RIBAVIRIN [Suspect]
     Indication: CHRONIC HEPATITIS C
     Dosage: DOSAGE FORM: UNSPECIFIED, ^1000^ UNITS UNSPECIFIED
     Route: 065
     Dates: start: 20130128
  3. PEGASYS [Suspect]
     Indication: CHRONIC HEPATITIS C
     Dosage: DOSAGE FORM: UNSPECIFIED
     Route: 065
     Dates: start: 20130128

REACTIONS (6)
  - Asthenia [Unknown]
  - Renal function test abnormal [Unknown]
  - Anaemia [Unknown]
  - Rash [Unknown]
  - Hyperuricaemia [Unknown]
  - Sudden death [Fatal]
